FAERS Safety Report 6522534-6 (Version None)
Quarter: 2009Q4

REPORT INFORMATION
  Report Type: 
  Country: None (occurrence: None)
  Receive Date: 20091224
  Receipt Date: 20091216
  Transmission Date: 20100525
  Serious: No
  Sender: FDA-Public Use
  Company Number: 410522

PATIENT
  Age: 37 Year
  Sex: Male
  Weight: 76 kg

DRUGS (4)
  1. OXALIPLATIN [Suspect]
     Indication: DRUG USE FOR UNKNOWN INDICATION
     Dosage: UNKNOWN, ONCE, UNKNOWN, INTRAVENOUS
     Route: 042
     Dates: start: 20090917, end: 20090917
  2. OXALIPLATIN [Suspect]
     Indication: DRUG USE FOR UNKNOWN INDICATION
     Dosage: UNKNOWN, ONCE, UNKNOWN, INTRAVENOUS
     Route: 042
     Dates: start: 20090917, end: 20090917
  3. ANZEMET [Concomitant]
  4. DECADRON [Concomitant]

REACTIONS (2)
  - ERYTHEMA [None]
  - NAUSEA [None]
